FAERS Safety Report 15191814 (Version 1)
Quarter: 2018Q3

REPORT INFORMATION
  Report Type: Spontaneous
  Country: US (occurrence: US)
  Receive Date: 20180625
  Receipt Date: 20180625
  Transmission Date: 20181010
  Serious: Yes (Death)
  Sender: FDA-Public Use
  Company Number: None

PATIENT
  Age: 71 Year
  Sex: Male

DRUGS (1)
  1. REVLIMID [Suspect]
     Active Substance: LENALIDOMIDE
     Indication: PLASMA CELL MYELOMA
     Route: 048
     Dates: start: 20180604, end: 20180621

REACTIONS (10)
  - Bradycardia [None]
  - Cardiac arrest [None]
  - Fall [None]
  - Tendon rupture [None]
  - Deep vein thrombosis [None]
  - Hypokalaemia [None]
  - Right ventricular enlargement [None]
  - Cardio-respiratory arrest [None]
  - Pulmonary embolism [None]
  - Ventricular fibrillation [None]

NARRATIVE: CASE EVENT DATE: 20180621
